FAERS Safety Report 24845923 (Version 3)
Quarter: 2025Q1

REPORT INFORMATION
  Report Type: Report from Study
  Country: JP (occurrence: JP)
  Receive Date: 20250115
  Receipt Date: 20250121
  Transmission Date: 20250408
  Serious: Yes (Life-Threatening, Hospitalization)
  Sender: ALEXION PHARMACEUTICALS
  Company Number: JP-ALXN-A202309867

PATIENT
  Age: 40 Year
  Weight: 49.6 kg

DRUGS (15)
  1. ULTOMIRIS [Suspect]
     Active Substance: RAVULIZUMAB-CWVZ
     Indication: Neuromyelitis optica spectrum disorder
  2. ULTOMIRIS [Suspect]
     Active Substance: RAVULIZUMAB-CWVZ
  3. SOLIRIS [Suspect]
     Active Substance: ECULIZUMAB
     Indication: Neuromyelitis optica spectrum disorder
     Dosage: 900 MILLIGRAM, QW
  4. SOLIRIS [Suspect]
     Active Substance: ECULIZUMAB
     Dosage: 1200 MILLIGRAM, Q2W
  5. SOLIRIS [Suspect]
     Active Substance: ECULIZUMAB
     Dosage: 1200 MILLIGRAM, Q2W
  6. Rinderon [Concomitant]
     Indication: Anaphylactic reaction
     Dosage: 100 MILLIGRAM, TIW
     Route: 065
  7. Rinderon [Concomitant]
     Indication: Neuromyelitis optica spectrum disorder
     Dosage: 100 MILLIGRAM, TIW
     Route: 065
  8. Rinderon [Concomitant]
     Dosage: 0.5 MILLIGRAM, QD
  9. Rinderon [Concomitant]
     Dosage: 100 MILLIGRAM, TIW
     Route: 065
  10. Rinderon [Concomitant]
     Dosage: 1 MILLIGRAM, QD
  11. Rinderon [Concomitant]
     Dosage: 0.5 MILLIGRAM, QD
  12. Rinderon [Concomitant]
  13. Rinderon [Concomitant]
     Dosage: 1 MILLIGRAM, QD
  14. PROGRAF [Concomitant]
     Active Substance: TACROLIMUS
     Indication: Neuromyelitis optica spectrum disorder
     Dosage: 3 MILLIGRAM, QD
  15. PROGRAF [Concomitant]
     Active Substance: TACROLIMUS
     Dosage: 1.5 MILLIGRAM, QD

REACTIONS (7)
  - Drug hypersensitivity [Recovered/Resolved]
  - Pallor [Recovered/Resolved]
  - Hyperhidrosis [Recovered/Resolved]
  - Cold sweat [Recovered/Resolved]
  - Abdominal pain [Recovered/Resolved]
  - Rash [Recovered/Resolved]
  - Nausea [Recovered/Resolved]
